FAERS Safety Report 5674332-3 (Version None)
Quarter: 2008Q2

REPORT INFORMATION
  Report Type: 
  Country: None (occurrence: None)
  Receive Date: 20080229
  Receipt Date: 20071026
  Transmission Date: 20081010
  Serious: Yes (Other)
  Sender: FDA-Public Use
  Company Number: 250427

PATIENT
  Age: 47 Year
  Sex: Female
  Weight: 65.8 kg

DRUGS (1)
  1. NUTROPIN AQ [Suspect]
     Indication: GROWTH HORMONE DEFICIENCY
     Dosage: 0.2 ML, QD, SUBCUTANEOUS
     Route: 058

REACTIONS (2)
  - BREAST CANCER [None]
  - LYMPHOMA [None]
